FAERS Safety Report 8508061-5 (Version None)
Quarter: 2012Q3

REPORT INFORMATION
  Report Type: 
  Country: None (occurrence: None)
  Receive Date: 20120713
  Receipt Date: 20120709
  Transmission Date: 20120928
  Serious: Yes (Other)
  Sender: FDA-Public Use
  Company Number: PHHY2012AT057281

PATIENT
  Sex: Female

DRUGS (13)
  1. DAFLON (DIOSMIN) [Concomitant]
     Dosage: 500 MG, TWICE DAILY
     Dates: start: 20050101
  2. SPIRONOLACTONE [Concomitant]
  3. AFINITOR [Suspect]
     Indication: METASTATIC RENAL CELL CARCINOMA
     Dosage: 10 MG, UNK
     Dates: end: 20120608
  4. FUROSEMIDE [Concomitant]
     Dosage: 40 MG, HALF TABLET DAILY
     Dates: start: 20050101
  5. CANDESARTAN CILEXETIL [Concomitant]
     Dosage: 32/12.5 MG
  6. ALLOPURINOL [Concomitant]
     Dosage: 1000 MG, UNK
     Dates: start: 20050101
  7. OMEC [Concomitant]
     Dosage: 40 MG, QD
  8. MARCUMAR [Concomitant]
     Dosage: 3 MG, UNK
  9. DEANXIT [Concomitant]
     Dosage: 1 DF, UNK
  10. METFORMIN HYDROCHLORIDE [Concomitant]
  11. LERCANIDIPINE [Concomitant]
     Dosage: 10 MG, QD
     Dates: start: 20050101
  12. INKONTAN [Concomitant]
     Dosage: 30 MG, HALF TABLET DAILY
  13. DICLOFENAC SODIUM [Concomitant]
     Indication: ARTHRALGIA
     Dosage: 75 MG, TWICE DAILY
     Dates: start: 20111111

REACTIONS (12)
  - BLOOD TRIGLYCERIDES INCREASED [None]
  - BLOOD ALKALINE PHOSPHATASE INCREASED [None]
  - BLOOD URIC ACID INCREASED [None]
  - EOSINOPHIL COUNT INCREASED [None]
  - BLOOD CHOLESTEROL INCREASED [None]
  - ALANINE AMINOTRANSFERASE INCREASED [None]
  - GAMMA-GLUTAMYLTRANSFERASE INCREASED [None]
  - INTERNATIONAL NORMALISED RATIO INCREASED [None]
  - HAEMOGLOBIN DECREASED [None]
  - HAEMATOCRIT DECREASED [None]
  - NAUSEA [None]
  - BLOOD CREATININE INCREASED [None]
